FAERS Safety Report 22294329 (Version 1)
Quarter: 2023Q2

REPORT INFORMATION
  Report Type: Report from Study
  Country: NL (occurrence: NL)
  Receive Date: 20230508
  Receipt Date: 20230508
  Transmission Date: 20230722
  Serious: Yes (Other)
  Sender: FDA-Public Use
  Company Number: NL-MYLANLABS-2023M1044289

PATIENT
  Age: 73 Year
  Sex: Male

DRUGS (1)
  1. CREON [Suspect]
     Active Substance: PANCRELIPASE AMYLASE\PANCRELIPASE LIPASE\PANCRELIPASE PROTEASE
     Indication: Pancreatitis chronic
     Dosage: UNKNOWN
     Route: 048
     Dates: start: 20230117

REACTIONS (1)
  - Vitrectomy [Recovering/Resolving]

NARRATIVE: CASE EVENT DATE: 20230420
